FAERS Safety Report 5401086-8 (Version None)
Quarter: 2007Q3

REPORT INFORMATION
  Report Type: 
  Country: None (occurrence: None)
  Receive Date: 20070731
  Receipt Date: 20070723
  Transmission Date: 20080115
  Serious: Yes (Other)
  Sender: FDA-Public Use
  Company Number: US-JNJFOC-20070701336

PATIENT
  Sex: Female

DRUGS (5)
  1. INVEGA [Suspect]
     Route: 048
  2. INVEGA [Suspect]
     Indication: PSYCHOTIC DISORDER
     Route: 048
  3. PROZAC [Concomitant]
     Indication: DEPRESSION
  4. GEODON [Concomitant]
  5. RISPERDAL [Concomitant]

REACTIONS (2)
  - CATATONIA [None]
  - DROOLING [None]
